FAERS Safety Report 24227460 (Version 5)
Quarter: 2025Q2

REPORT INFORMATION
  Report Type: Spontaneous
  Country: US (occurrence: US)
  Receive Date: 20240820
  Receipt Date: 20250514
  Transmission Date: 20250717
  Serious: No
  Sender: SANOFI AVENTIS
  Company Number: US-SA-SAC20240812000540

PATIENT
  Age: 41 Year
  Sex: Female

DRUGS (3)
  1. DUPIXENT [Suspect]
     Active Substance: DUPILUMAB
     Indication: Dermatitis atopic
     Dosage: 300 MG, QOW
     Route: 058
     Dates: start: 20230616
  2. DUPIXENT [Suspect]
     Active Substance: DUPILUMAB
     Indication: Pruritus
  3. PREDNISONE [Concomitant]
     Active Substance: PREDNISONE
     Dates: start: 202411, end: 202411

REACTIONS (10)
  - Migraine [Unknown]
  - Dermatitis contact [Recovering/Resolving]
  - Skin erosion [Recovering/Resolving]
  - Heart rate irregular [Unknown]
  - Palpitations [Unknown]
  - Illness [Not Recovered/Not Resolved]
  - Erythema [Recovering/Resolving]
  - Headache [Unknown]
  - Dermatitis atopic [Unknown]
  - Product use in unapproved indication [Unknown]

NARRATIVE: CASE EVENT DATE: 20230616
